FAERS Safety Report 7048362-3 (Version None)
Quarter: 2010Q4

REPORT INFORMATION
  Report Type: 
  Country: None (occurrence: None)
  Receive Date: 20101015
  Receipt Date: 20101007
  Transmission Date: 20110411
  Serious: Yes (Other)
  Sender: FDA-Public Use
  Company Number: US-PURDUE-USA-2010-0048964

PATIENT
  Sex: Female

DRUGS (3)
  1. OXYCONTIN [Suspect]
     Indication: PAIN
     Dosage: 20 MG, TID
     Dates: start: 20100916
  2. OXYCONTIN [Suspect]
     Dosage: 10 MG, UNK
     Dates: start: 20100916
  3. HYDROCODONE [Concomitant]
     Indication: BREAKTHROUGH PAIN
     Dosage: 7.5 MG, UNK

REACTIONS (9)
  - BONE PAIN [None]
  - DIZZINESS [None]
  - ERYTHEMA [None]
  - FEELING ABNORMAL [None]
  - HYPERHIDROSIS [None]
  - INADEQUATE ANALGESIA [None]
  - MALIGNANT MELANOMA STAGE II [None]
  - NAUSEA [None]
  - VERTIGO [None]
